FAERS Safety Report 8079488 (Version 4)
Quarter: 2012Q4

REPORT INFORMATION
  Report Type: 
  Country: DE (occurrence: DE)
  Receive Date: 20110808
  Receipt Date: 20121130
  Transmission Date: 20130627
  Serious: Yes (Death, Life-Threatening, Hospitalization)
  Sender: FDA-Public Use
  Company Number: PHHO2011DE07255

PATIENT
  Age: 72 Year
  Sex: Male
  Weight: 107 kg

DRUGS (58)
  1. EVEROLIMUS [Suspect]
     Indication: LIVER TRANSPLANT
     Dosage: 15-0-0 mg
     Route: 048
     Dates: start: 20110324, end: 20110420
  2. MYFORTIC [Concomitant]
     Indication: LIVER TRANSPLANT
     Dosage: 1080 mg, BID
  3. AMPHOTERICIN [Concomitant]
     Dosage: UNK
     Dates: start: 20110320, end: 20110322
  4. MYKUNDEX                           /00982301/ [Concomitant]
     Dosage: UNK
     Dates: start: 20110319, end: 20110331
  5. PIPERACILLIN [Concomitant]
     Dosage: UNK
     Dates: start: 20110320, end: 20110324
  6. SULFAMETHOXAZOLE AND TRIMETHOPRIM [Concomitant]
     Dosage: UNK
     Dates: start: 20110321, end: 20110323
  7. TOBRAMYCIN [Concomitant]
     Dosage: UNK
     Dates: start: 20110319, end: 20110324
  8. METAMIZOL ^NORMON^ [Concomitant]
     Dosage: UNK
     Dates: start: 20110320, end: 20110814
  9. OXYCODON [Concomitant]
     Dosage: UNK
     Dates: start: 20110319, end: 20110320
  10. BISOPROLOL [Concomitant]
     Dosage: UNK
     Dates: start: 20110321
  11. AMIODARON - 1 A PHARMA [Concomitant]
     Dosage: UNK
     Dates: start: 20110316, end: 20110419
  12. AMIODARON - 1 A PHARMA [Concomitant]
     Dosage: UNK
     Dates: start: 20110420, end: 20110701
  13. METOCLOPRAMID [Concomitant]
     Dosage: UNK
     Dates: start: 20110320, end: 20110321
  14. XIPAMID [Concomitant]
  15. PANTOPRAZOLE [Concomitant]
  16. LERCANIDIPIN ACTAVIS [Concomitant]
  17. VALSARTAN [Concomitant]
  18. LEVOTHYROXIN [Concomitant]
  19. PRIMIDON [Concomitant]
  20. KALIUMCHLORID [Concomitant]
  21. SPIRONOLACTON [Concomitant]
  22. HEPARIN [Concomitant]
  23. TAVANIC [Concomitant]
  24. TAZOBAC [Concomitant]
  25. URSOFALK [Concomitant]
  26. CIPROFLOXACIN [Concomitant]
  27. KALIUM [Concomitant]
  28. AUGMENTIN                               /SCH/ [Concomitant]
  29. ZIENAM [Concomitant]
  30. TEMGESIC [Concomitant]
  31. SIMULECT [Concomitant]
  32. DICLOFENAC [Concomitant]
  33. ATROVENT [Concomitant]
  34. IMIPENEM + CILASTATINA [Concomitant]
  35. PREDNISOLON [Concomitant]
  36. MAGALDRAT                          /00082501/ [Concomitant]
  37. AVALOX [Concomitant]
  38. VALCYTE [Concomitant]
  39. DIGIMERCK [Concomitant]
  40. MARCUMAR [Concomitant]
  41. RESONIUM [Concomitant]
  42. BALDRIAN-DISPERT [Concomitant]
  43. SUPRARENIN [Concomitant]
  44. PIRITRAMID HAMELN [Concomitant]
  45. TORASEMID [Concomitant]
  46. TROMETAMOL [Concomitant]
  47. NORADRENALIN ^LECIVA^ [Concomitant]
  48. REMIFENTANIL [Concomitant]
  49. LACTULOSE [Concomitant]
  50. BISACODYL [Concomitant]
  51. ROCEPHIN [Concomitant]
  52. KONAKION [Concomitant]
  53. NEXIUM 1-2-3 [Concomitant]
  54. KYBERNIN [Concomitant]
  55. BERIPLEX                           /01450501/ [Concomitant]
  56. FENTANYL [Concomitant]
  57. DOBUTAMIN [Concomitant]
  58. METRONIDAZOLE [Concomitant]

REACTIONS (14)
  - Endocarditis bacterial [Recovered/Resolved]
  - Cardiomyopathy [Not Recovered/Not Resolved]
  - Systemic candida [Recovering/Resolving]
  - Mendelson^s syndrome [Fatal]
  - Septic shock [Fatal]
  - Cardiac failure [Fatal]
  - Renal failure [Recovering/Resolving]
  - Hepatic haematoma [Not Recovered/Not Resolved]
  - Ileus [Unknown]
  - Pleural effusion [Not Recovered/Not Resolved]
  - Cholangitis [Recovered/Resolved]
  - Pneumonia [Recovered/Resolved]
  - Respiratory failure [Recovered/Resolved]
  - Renal disorder [Not Recovered/Not Resolved]
